FAERS Safety Report 5798822-8 (Version None)
Quarter: 2008Q2

REPORT INFORMATION
  Report Type: 
  Country: None (occurrence: None)
  Receive Date: 20080630
  Receipt Date: 20080617
  Transmission Date: 20081010
  Serious: Yes (Disabling)
  Sender: FDA-Public Use
  Company Number: POMP-1000207

PATIENT
  Age: 9 Month
  Sex: Female
  Weight: 2.8123 kg

DRUGS (11)
  1. MYOZYME [Suspect]
     Indication: GLYCOGEN STORAGE DISEASE TYPE II
     Dosage: 20 MG/KG, Q2W, INTRAVENOUS
     Route: 042
     Dates: start: 20080310
  2. FOLIC ACID [Concomitant]
  3. CAPTOPRIL [Concomitant]
  4. FUROSEMIDE [Concomitant]
  5. DIGOXIN [Concomitant]
  6. M.C.T. OIL (TRIGLYCERIDES) [Concomitant]
  7. DOMPERIDONE (DOMPERIDONE) [Concomitant]
  8. NITROFURANTOIN [Concomitant]
  9. FERRO-LIQUID (FERRO-LIQUID) [Concomitant]
  10. PENTAVITE LIQUID (PENTAVITE LIQUID) [Concomitant]
  11. SPIRONOLACTONE [Concomitant]

REACTIONS (5)
  - COLLAPSE OF LUNG [None]
  - DISEASE PROGRESSION [None]
  - HYPERCAPNIA [None]
  - HYPERHIDROSIS [None]
  - MUSCLE RIGIDITY [None]
